FAERS Safety Report 8175175-1 (Version None)
Quarter: 2012Q1

REPORT INFORMATION
  Report Type: 
  Country: None (occurrence: None)
  Receive Date: 20120229
  Receipt Date: 20120228
  Transmission Date: 20120608
  Serious: Yes (Hospitalization)
  Sender: FDA-Public Use
  Company Number: PHFR2011IE007351

PATIENT
  Sex: Male

DRUGS (2)
  1. VALPROATE SODIUM [Concomitant]
     Indication: AFFECTIVE DISORDER
     Dosage: 600 MG, UNK
     Route: 048
  2. CLOZARIL [Suspect]
     Indication: SCHIZOPHRENIA
     Dosage: 172.5 MG, UNK
     Route: 048
     Dates: start: 20010701

REACTIONS (2)
  - GASTROENTERITIS NOROVIRUS [None]
  - VOMITING [None]
